FAERS Safety Report 8258482-3 (Version None)
Quarter: 2012Q2

REPORT INFORMATION
  Report Type: 
  Country: None (occurrence: None)
  Receive Date: 20120404
  Receipt Date: 20120326
  Transmission Date: 20120825
  Serious: Yes (Other)
  Sender: FDA-Public Use
  Company Number: US-BAYER-2012-006657

PATIENT
  Sex: Female
  Weight: 90.249 kg

DRUGS (3)
  1. KLONOPIN [Concomitant]
     Dosage: 0.5 MG, TID
  2. MIRENA [Suspect]
     Indication: CONTRACEPTION
     Dosage: 20 MCG/24HR, CONT
     Dates: end: 20111101
  3. LEXAPRO [Concomitant]
     Dosage: 10 MG, QD

REACTIONS (2)
  - CERVICAL DYSPLASIA [None]
  - SMEAR CERVIX ABNORMAL [None]
